FAERS Safety Report 10785838 (Version 1)
Quarter: 2015Q1

REPORT INFORMATION
  Report Type: Spontaneous
  Country: DE (occurrence: DE)
  Receive Date: 20150211
  Receipt Date: 20150211
  Transmission Date: 20150721
  Serious: Yes (Hospitalization)
  Sender: FDA-Public Use
  Company Number: DE-MYLANLABS-2015M1002956

PATIENT

DRUGS (1)
  1. DOPADURA C 200/50 MG [Suspect]
     Active Substance: CARBIDOPA\LEVODOPA
     Dosage: .25 DF, UNK
     Route: 065
     Dates: start: 20150128, end: 20150128

REACTIONS (3)
  - Hospitalisation [Recovered/Resolved]
  - Accidental exposure to product by child [Unknown]
  - No adverse event [Recovered/Resolved]

NARRATIVE: CASE EVENT DATE: 20150128
